FAERS Safety Report 11550056 (Version 1)
Quarter: 2015Q3

REPORT INFORMATION
  Report Type: Spontaneous
  Country: US (occurrence: US)
  Receive Date: 20150903
  Receipt Date: 20150903
  Transmission Date: 20151125
  Serious: No
  Sender: FDA-Public Use
  Company Number: US-ELI_LILLY_AND_COMPANY-US201301006106

PATIENT
  Sex: Female

DRUGS (3)
  1. HUMALOG MIX75/25 [Suspect]
     Active Substance: INSULIN LISPRO
     Indication: DIABETES MELLITUS
     Dosage: 50 U, BID
  2. HUMALOG MIX75/25 [Suspect]
     Active Substance: INSULIN LISPRO
     Indication: DIABETES MELLITUS
     Dosage: 50 U, BID
     Dates: start: 2012
  3. HUMALOG MIX75/25 [Suspect]
     Active Substance: INSULIN LISPRO
     Dosage: 50 U, BID

REACTIONS (3)
  - Increased tendency to bruise [Unknown]
  - Injection site bruising [Recovering/Resolving]
  - Frustration [Unknown]
